FAERS Safety Report 5192487-4 (Version None)
Quarter: 2006Q4

REPORT INFORMATION
  Report Type: 
  Country: None (occurrence: None)
  Receive Date: 20061227
  Receipt Date: 20061220
  Transmission Date: 20070319
  Serious: Yes (Hospitalization)
  Sender: FDA-Public Use
  Company Number: US-MERCK-0612USA03668

PATIENT

DRUGS (1)
  1. JANUVIA [Suspect]
     Route: 048
     Dates: start: 20060101, end: 20060101

REACTIONS (1)
  - PANCREATITIS [None]
